FAERS Safety Report 7769032-X (Version None)
Quarter: 2011Q3

REPORT INFORMATION
  Report Type: 
  Country: None (occurrence: None)
  Receive Date: 20110922
  Receipt Date: 20110714
  Transmission Date: 20111222
  Serious: No
  Sender: FDA-Public Use
  Company Number: US-ASTRAZENECA-2011SE42236

PATIENT
  Age: 63 Year
  Sex: Female

DRUGS (4)
  1. CARBAMAZPINE [Concomitant]
  2. SEROQUEL XR [Suspect]
     Indication: BIPOLAR II DISORDER
     Route: 048
     Dates: start: 20060101
  3. SEROQUEL XR [Suspect]
     Route: 048
  4. ATIVAN [Concomitant]

REACTIONS (4)
  - DRUG DOSE OMISSION [None]
  - INCORRECT DOSE ADMINISTERED [None]
  - CRYING [None]
  - SOCIAL AVOIDANT BEHAVIOUR [None]
